FAERS Safety Report 10203640 (Version 2)
Quarter: 2014Q2

REPORT INFORMATION
  Report Type: Spontaneous
  Country: US (occurrence: None)
  Receive Date: 20140523
  Receipt Date: 20140617
  Transmission Date: 20141212
  Serious: Yes (Other)
  Sender: FDA-Public Use
  Company Number: 2014-001433

PATIENT
  Age: 79 Year
  Sex: Female

DRUGS (4)
  1. ESTRACE CREAM (ESTRADIOL) VAGINAL CREAM, .01% [Suspect]
     Indication: PREOPERATIVE CARE
     Dosage: DIME SIZED AMOUNT APPLIED WITH FINGERTIP ONCE WEEKLY
     Route: 067
  2. ESTRACE CREAM (ESTRADIOL) VAGINAL CREAM, .01% [Suspect]
     Indication: BLADDER OPERATION
     Dosage: DIME SIZED AMOUNT APPLIED WITH FINGERTIP ONCE WEEKLY
     Route: 067
  3. ANTIHYPERTENSIVES [Concomitant]
  4. FIORICET (BUTALBITAL, CAFFEINE, PARACETAMOL) [Concomitant]

REACTIONS (4)
  - Visual impairment [None]
  - Retinal tear [None]
  - Visual acuity reduced [None]
  - Photopsia [None]
